FAERS Safety Report 5210509-9 (Version None)
Quarter: 2007Q1

REPORT INFORMATION
  Report Type: 
  Country: None (occurrence: None)
  Receive Date: 20070117
  Receipt Date: 20070109
  Transmission Date: 20070707
  Serious: Yes (Hospitalization)
  Sender: FDA-Public Use
  Company Number: 2007AC00041

PATIENT
  Sex: Male

DRUGS (2)
  1. GOSERELIN ACETATE [Suspect]
     Indication: PROSTATE CANCER
     Route: 058
  2. FLUTAMIDE [Suspect]
     Indication: PROSTATE CANCER

REACTIONS (1)
  - HEPATITIS TOXIC [None]
